FAERS Safety Report 19578210 (Version 1)
Quarter: 2021Q3

REPORT INFORMATION
  Report Type: Report from Study
  Country: None (occurrence: US)
  Receive Date: 20210719
  Receipt Date: 20210719
  Transmission Date: 20211014
  Serious: Yes (Other)
  Sender: FDA-Public Use
  Company Number: US-ABBVIE-21K-163-3994936-00

PATIENT
  Age: 65 Year
  Sex: Male

DRUGS (1)
  1. IMBRUVICA [Suspect]
     Active Substance: IBRUTINIB
     Indication: CHRONIC LYMPHOCYTIC LEUKAEMIA
     Route: 048
     Dates: start: 20191001

REACTIONS (3)
  - Ischaemic stroke [Recovering/Resolving]
  - Intracranial aneurysm [Not Recovered/Not Resolved]
  - Spinal stroke [Recovering/Resolving]

NARRATIVE: CASE EVENT DATE: 202105
